FAERS Safety Report 7792902-3 (Version None)
Quarter: 2011Q4

REPORT INFORMATION
  Report Type: 
  Country: None (occurrence: None)
  Receive Date: 20111003
  Receipt Date: 20110919
  Transmission Date: 20120403
  Serious: Yes (Other)
  Sender: FDA-Public Use
  Company Number: PHHY2011MX84955

PATIENT
  Sex: Female

DRUGS (6)
  1. EXFORGE HCT [Suspect]
     Indication: HYPERTENSION
     Dosage: 1 DF, (320/10/25 MG) DAILY
     Dates: start: 20110801
  2. EFFEXOR XR [Concomitant]
     Dosage: 1 DF, QD
  3. LASIX [Concomitant]
     Indication: HYPERTENSION
     Dosage: 1 DF, QD
  4. VITERNUM [Concomitant]
     Dosage: 1 DF, TID
  5. ALPRAZOLAM [Concomitant]
  6. METOPROLOL TARTRATE [Concomitant]
     Indication: HYPERTENSION
     Dosage: 1 DF, UNK

REACTIONS (3)
  - HYPERTENSION [None]
  - OEDEMA [None]
  - DEPRESSION [None]
